FAERS Safety Report 22061922 (Version 1)
Quarter: 2023Q1

REPORT INFORMATION
  Report Type: Report from Study
  Country: US (occurrence: US)
  Receive Date: 20230304
  Receipt Date: 20230304
  Transmission Date: 20230418
  Serious: Yes (Hospitalization)
  Sender: FDA-Public Use
  Company Number: US-002147023-NVSC2023US046433

PATIENT
  Sex: Female

DRUGS (2)
  1. GILENYA [Suspect]
     Active Substance: FINGOLIMOD HYDROCHLORIDE
     Indication: Multiple sclerosis
     Dosage: 0.5 MG, QD
     Route: 048
  2. FINGOLIMOD [Suspect]
     Active Substance: FINGOLIMOD
     Indication: Product used for unknown indication
     Dosage: UNK (TWO MONTHS)
     Route: 065

REACTIONS (1)
  - Illness [Recovering/Resolving]
